FAERS Safety Report 9068403 (Version 2)
Quarter: 2013Q1

REPORT INFORMATION
  Report Type: Spontaneous
  Country: US (occurrence: US)
  Receive Date: 20130206
  Receipt Date: 20130329
  Transmission Date: 20140127
  Serious: No
  Sender: FDA-Public Use
  Company Number: US-009507513-1302USA000281

PATIENT
  Age: 81 None
  Sex: Female

DRUGS (4)
  1. CLARITIN [Suspect]
     Indication: RHINORRHOEA
     Dosage: 10 MG, ONCE
     Route: 048
     Dates: start: 20130129
  2. CLARITIN [Suspect]
     Indication: SNEEZING
  3. CLARITIN [Suspect]
     Indication: SEASONAL ALLERGY
  4. CLARITIN [Suspect]
     Indication: HOUSE DUST ALLERGY

REACTIONS (1)
  - Drug ineffective [Unknown]
